FAERS Safety Report 18357373 (Version 3)
Quarter: 2021Q1

REPORT INFORMATION
  Report Type: Report from Study
  Country: None (occurrence: US)
  Receive Date: 20201008
  Receipt Date: 20210118
  Transmission Date: 20210419
  Serious: Yes (Other)
  Sender: FDA-Public Use
  Company Number: US-ABBVIE-20K-163-3571327-00

PATIENT
  Age: 56 Year
  Sex: Female

DRUGS (6)
  1. HUMIRA [Suspect]
     Active Substance: ADALIMUMAB
     Dosage: DAY 15
     Route: 058
     Dates: start: 20200515, end: 20200515
  2. HUMIRA [Suspect]
     Active Substance: ADALIMUMAB
     Indication: CROHN^S DISEASE
     Route: 058
     Dates: start: 20200529
  3. HUMIRA [Suspect]
     Active Substance: ADALIMUMAB
     Indication: CROHN^S DISEASE
     Dosage: DAY 1
     Route: 058
     Dates: start: 20200501, end: 20200501
  4. HUMIRA [Suspect]
     Active Substance: ADALIMUMAB
     Indication: CROHN^S DISEASE
     Dosage: CF
     Route: 058
  5. HUMIRA [Suspect]
     Active Substance: ADALIMUMAB
     Indication: RHEUMATOID ARTHRITIS
  6. HUMIRA [Suspect]
     Active Substance: ADALIMUMAB
     Indication: RHEUMATOID ARTHRITIS

REACTIONS (18)
  - Decreased appetite [Recovering/Resolving]
  - Abdominal pain [Recovering/Resolving]
  - Nausea [Unknown]
  - Headache [Not Recovered/Not Resolved]
  - Depressed mood [Unknown]
  - Diarrhoea [Recovering/Resolving]
  - Sinusitis [Recovering/Resolving]
  - Bronchitis [Unknown]
  - Toothache [Recovering/Resolving]
  - Malaise [Recovering/Resolving]
  - Insomnia [Recovering/Resolving]
  - Loss of personal independence in daily activities [Recovering/Resolving]
  - Clostridium difficile infection [Recovered/Resolved]
  - Intestinal fistula [Unknown]
  - Sinus pain [Recovering/Resolving]
  - Fistula discharge [Recovering/Resolving]
  - Vomiting [Unknown]
  - Ear infection [Recovering/Resolving]

NARRATIVE: CASE EVENT DATE: 2020
